FAERS Safety Report 7880702-5 (Version None)
Quarter: 2011Q4

REPORT INFORMATION
  Report Type: 
  Country: None (occurrence: None)
  Receive Date: 20111101
  Receipt Date: 20111021
  Transmission Date: 20120403
  Serious: Yes (Other)
  Sender: FDA-Public Use
  Company Number: US-JNJFOC-20111010025

PATIENT
  Age: 68 Year
  Sex: Female
  Weight: 67.13 kg

DRUGS (9)
  1. ROGAINE EXTRA STRENGTH (FOR MEN) [Suspect]
     Dosage: 5%
     Route: 061
     Dates: start: 20110630, end: 20110929
  2. ROGAINE EXTRA STRENGTH (FOR MEN) [Suspect]
     Indication: ALOPECIA
     Dosage: 5%
     Route: 061
     Dates: start: 20110630, end: 20110929
  3. CLONIDINE [Suspect]
     Indication: BLOOD PRESSURE INCREASED
     Dosage: TWO
     Route: 065
     Dates: start: 20111019
  4. NEURONTIN [Concomitant]
     Indication: NERVE INJURY
     Route: 065
  5. ROGAINE EXTRA STRENGTH (FOR MEN) [Suspect]
     Dosage: 5%
     Route: 061
     Dates: start: 20110930
  6. VITAMINS NOS [Concomitant]
     Indication: PRODUCT USED FOR UNKNOWN INDICATION
     Route: 065
  7. ASPIRIN [Concomitant]
     Indication: PRODUCT USED FOR UNKNOWN INDICATION
     Dosage: LOW DOSE
     Route: 065
  8. ROGAINE EXTRA STRENGTH (FOR MEN) [Suspect]
     Dosage: 5%
     Route: 061
     Dates: start: 20110930
  9. OMEPRAZOLE [Concomitant]
     Indication: DIVERTICULUM
     Route: 065

REACTIONS (6)
  - PRODUCT QUALITY ISSUE [None]
  - WRONG DRUG ADMINISTERED [None]
  - UNDERDOSE [None]
  - MALAISE [None]
  - MUSCLE SPASMS [None]
  - BLOOD PRESSURE INCREASED [None]
